FAERS Safety Report 9027788 (Version 3)
Quarter: 2013Q4

REPORT INFORMATION
  Report Type: Spontaneous
  Country: US (occurrence: US)
  Receive Date: 20130124
  Receipt Date: 20131119
  Transmission Date: 20140711
  Serious: Yes (Other)
  Sender: FDA-Public Use
  Company Number: US-JNJFOC-20130109343

PATIENT
  Age: 48 Year
  Sex: Male
  Weight: 75.75 kg

DRUGS (8)
  1. REMICADE [Suspect]
     Indication: CROHN^S DISEASE
     Route: 042
  2. REMICADE [Suspect]
     Indication: CROHN^S DISEASE
     Dosage: 8 YEARS AGO
     Route: 042
  3. REMICADE [Suspect]
     Indication: CROHN^S DISEASE
     Route: 042
     Dates: start: 201203
  4. VITAMIN B-12 [Concomitant]
     Route: 050
  5. CALCIUM [Concomitant]
     Route: 048
  6. LEVSIN SL [Concomitant]
     Route: 060
  7. APRISO [Concomitant]
     Route: 048
     Dates: start: 20120312
  8. IMODIUM [Concomitant]
     Route: 065

REACTIONS (10)
  - Cholecystitis [Unknown]
  - Cholesterosis [Unknown]
  - Splenomegaly [Unknown]
  - Hypertension [Unknown]
  - Crohn^s disease [Unknown]
  - Amylase increased [Recovered/Resolved]
  - Liver function test abnormal [Recovered/Resolved]
  - Lipase increased [Recovered/Resolved]
  - Therapeutic response decreased [Recovering/Resolving]
  - Weight decreased [Recovered/Resolved]
